FAERS Safety Report 9358602 (Version 2)
Quarter: 2013Q3

REPORT INFORMATION
  Report Type: Spontaneous
  Country: JP (occurrence: JP)
  Receive Date: 20130620
  Receipt Date: 20130812
  Transmission Date: 20140515
  Serious: Yes (Other)
  Sender: FDA-Public Use
  Company Number: JP-ELI_LILLY_AND_COMPANY-JP201306004652

PATIENT
  Age: 54 Year
  Sex: Male

DRUGS (2)
  1. GEMZAR [Suspect]
     Indication: PANCREATIC CARCINOMA
     Dosage: 300 MG, UNK
  2. GEMZAR [Suspect]
     Dosage: 200 MG, UNK

REACTIONS (1)
  - Portal vein stenosis [Recovering/Resolving]
